FAERS Safety Report 10592024 (Version 1)
Quarter: 2014Q4

REPORT INFORMATION
  Report Type: Spontaneous
  Country: JP (occurrence: JP)
  Receive Date: 20141119
  Receipt Date: 20141119
  Transmission Date: 20150529
  Serious: Yes (Hospitalization, Other)
  Sender: FDA-Public Use
  Company Number: JP-009507513-1411JPN007713

PATIENT
  Age: 98 Year
  Sex: Female

DRUGS (1)
  1. TRYPTANOL [Suspect]
     Active Substance: AMITRIPTYLINE
     Dosage: ONE TIME DOSE 5 MG, A HALF DOSE
     Route: 048

REACTIONS (2)
  - Pyrexia [Unknown]
  - Interstitial lung disease [Unknown]
